FAERS Safety Report 16130360 (Version 1)
Quarter: 2019Q1

REPORT INFORMATION
  Report Type: Spontaneous
  Country: US (occurrence: US)
  Receive Date: 20190328
  Receipt Date: 20190328
  Transmission Date: 20190418
  Serious: Yes (Hospitalization, Other)
  Sender: FDA-Public Use
  Company Number: US-009507513-1903USA010996

PATIENT
  Sex: Female
  Weight: 115.65 kg

DRUGS (1)
  1. NUVARING [Suspect]
     Active Substance: ETHINYL ESTRADIOL\ETONOGESTREL
     Indication: PRODUCT USED FOR UNKNOWN INDICATION
     Dosage: 0.12-0.015 MG/24 HR, INSERT AND LEAVE IN PLACE FOR 3 CONSECUTIVE WEEKS, THEN REMOVE FOR 1 WEEK
     Route: 067
     Dates: start: 2016, end: 20161116

REACTIONS (3)
  - Menorrhagia [Unknown]
  - Pneumonia [Unknown]
  - Pulmonary embolism [Recovering/Resolving]

NARRATIVE: CASE EVENT DATE: 201610
